FAERS Safety Report 13613422 (Version 2)
Quarter: 2017Q3

REPORT INFORMATION
  Report Type: Spontaneous
  Country: US (occurrence: US)
  Receive Date: 20170605
  Receipt Date: 20170706
  Transmission Date: 20171127
  Serious: Yes (Death, Hospitalization)
  Sender: FDA-Public Use
  Company Number: US-BAUSCH-BL-2017-017860

PATIENT
  Sex: Female
  Weight: 79.9 kg

DRUGS (2)
  1. XIFAXAN [Suspect]
     Active Substance: RIFAXIMIN
     Route: 048
     Dates: start: 20170418
  2. XIFAXAN [Suspect]
     Active Substance: RIFAXIMIN
     Indication: HEPATIC CIRRHOSIS
     Dosage: FEW YEARS AGO
     Route: 048
     Dates: end: 2016

REACTIONS (4)
  - Aneurysm [Fatal]
  - Renal failure [Fatal]
  - Liver disorder [Unknown]
  - Pneumonia [Fatal]
